FAERS Safety Report 22144125 (Version 1)
Quarter: 2023Q1

REPORT INFORMATION
  Report Type: Spontaneous
  Country: CN (occurrence: CN)
  Receive Date: 20230327
  Receipt Date: 20230327
  Transmission Date: 20230417
  Serious: Yes (Hospitalization, Other)
  Sender: FDA-Public Use
  Company Number: CN-ABBVIE-4705544

PATIENT
  Age: 70 Year
  Sex: Female

DRUGS (8)
  1. VENCLEXTA [Suspect]
     Active Substance: VENETOCLAX
     Indication: Acute monocytic leukaemia
     Dosage: 100 MILLIGRAM
     Route: 048
     Dates: start: 20230224, end: 20230224
  2. VENCLEXTA [Suspect]
     Active Substance: VENETOCLAX
     Indication: Acute monocytic leukaemia
     Dosage: 400 MILLIGRAM
     Route: 048
     Dates: start: 20230227, end: 20230306
  3. VENCLEXTA [Suspect]
     Active Substance: VENETOCLAX
     Indication: Acute monocytic leukaemia
     Dosage: 200 MILLIGRAM
     Route: 048
     Dates: start: 20230225, end: 20230225
  4. VENCLEXTA [Suspect]
     Active Substance: VENETOCLAX
     Indication: Acute monocytic leukaemia
     Dosage: 300 MILLIGRAM
     Route: 048
     Dates: start: 20230226, end: 20230226
  5. DECITABINE [Suspect]
     Active Substance: DECITABINE
     Indication: Acute monocytic leukaemia
     Dosage: 25 MILLIGRAM
     Route: 041
     Dates: start: 20230224, end: 20230228
  6. INTERFERON [Suspect]
     Active Substance: INTERFERON
     Indication: Acute monocytic leukaemia
     Dosage: 50 MILLIGRAM
     Route: 058
     Dates: start: 20230307, end: 20230309
  7. INTERFERON [Suspect]
     Active Substance: INTERFERON
     Indication: Acute monocytic leukaemia
     Dosage: 50 MILLIGRAM
     Route: 058
     Dates: start: 20230309, end: 20230309
  8. INTERFERON [Suspect]
     Active Substance: INTERFERON
     Indication: Acute monocytic leukaemia
     Dosage: 50 MILLIGRAM
     Route: 058
     Dates: start: 20230224, end: 20230306

REACTIONS (1)
  - Myelosuppression [Recovering/Resolving]

NARRATIVE: CASE EVENT DATE: 20230312
